FAERS Safety Report 4407618-0 (Version None)
Quarter: 2004Q3

REPORT INFORMATION
  Report Type: 
  Country: None (occurrence: None)
  Receive Date: 20040721
  Receipt Date: 20040709
  Transmission Date: 20050211
  Serious: No
  Sender: FDA-Public Use
  Company Number: 04H-056-0266518-00

PATIENT
  Age: 92 Year
  Sex: Female

DRUGS (2)
  1. BUPIVACAINE HCL [Suspect]
     Indication: ANALGESIC EFFECT
     Dosage: SEE IMAGE
     Route: 037
  2. MORPHINE [Suspect]
     Indication: ANALGESIC EFFECT
     Dosage: SEE IMAGE

REACTIONS (4)
  - APNOEA [None]
  - COMA [None]
  - DRUG INTERACTION [None]
  - MIOSIS [None]
